FAERS Safety Report 16782270 (Version 1)
Quarter: 2019Q3

REPORT INFORMATION
  Report Type: Spontaneous
  Country: ES (occurrence: ES)
  Receive Date: 20190906
  Receipt Date: 20190906
  Transmission Date: 20191005
  Serious: Yes (Other)
  Sender: FDA-Public Use
  Company Number: ES-MYLANLABS-2019M1083383

PATIENT
  Age: 59 Year
  Sex: Male
  Weight: 75 kg

DRUGS (2)
  1. OMEPRAZOL                          /00661201/ [Concomitant]
     Active Substance: OMEPRAZOLE
     Indication: HIATUS HERNIA
     Dosage: 20 MILLIGRAM, QD
     Route: 048
     Dates: start: 2003
  2. IBUPROFEN. [Suspect]
     Active Substance: IBUPROFEN
     Indication: CATARRH
     Dosage: 600 MILLIGRAM, TOTAL
     Route: 048
     Dates: start: 20081125, end: 20081126

REACTIONS (1)
  - Tongue oedema [Recovered/Resolved]

NARRATIVE: CASE EVENT DATE: 20081126
